FAERS Safety Report 21020674 (Version 3)
Quarter: 2022Q3

REPORT INFORMATION
  Report Type: Spontaneous
  Country: US (occurrence: US)
  Receive Date: 20220629
  Receipt Date: 20220713
  Transmission Date: 20221027
  Serious: No
  Sender: FDA-Public Use
  Company Number: US-JNJFOC-20220646265

PATIENT
  Sex: Male

DRUGS (1)
  1. ERLEADA [Suspect]
     Active Substance: APALUTAMIDE
     Indication: Product used for unknown indication
     Route: 048
     Dates: start: 202206

REACTIONS (6)
  - Fatigue [Not Recovered/Not Resolved]
  - Hot flush [Unknown]
  - Taste disorder [Unknown]
  - Night sweats [Unknown]
  - Lethargy [Unknown]
  - Dysgeusia [Unknown]
